FAERS Safety Report 9650772 (Version 1)
Quarter: 2013Q4

REPORT INFORMATION
  Report Type: Other
  Country: GB (occurrence: GB)
  Receive Date: 20131029
  Receipt Date: 20131029
  Transmission Date: 20140711
  Serious: Yes (Life-Threatening, Hospitalization, Disabling, Other)
  Sender: FDA-Public Use
  Company Number: GB-MPIJNJ-2013JNJ000737

PATIENT
  Sex: 0

DRUGS (4)
  1. VELCADE [Suspect]
     Indication: PLASMA CELL MYELOMA
     Dosage: 1.3 MG/M2, UNK
     Route: 058
     Dates: start: 20130620, end: 20130813
  2. DEXAMETHASONE [Concomitant]
     Indication: PLASMA CELL MYELOMA
     Dosage: 20 MG, UNK
     Route: 048
     Dates: start: 201306, end: 201308
  3. NEORECORMON [Concomitant]
     Indication: PLASMA CELL MYELOMA
     Dosage: 5000 IU
     Route: 058
     Dates: start: 201306
  4. PAMIDRONATE [Concomitant]
     Indication: PLASMA CELL MYELOMA
     Dosage: 30 MG, UNK
     Route: 042
     Dates: start: 201306

REACTIONS (4)
  - Toxic encephalopathy [Recovering/Resolving]
  - Hyperammonaemic encephalopathy [Recovering/Resolving]
  - Metabolic encephalopathy [Recovering/Resolving]
  - Plasma cell myeloma [Unknown]
